FAERS Safety Report 22137741 (Version 2)
Quarter: 2023Q2

REPORT INFORMATION
  Report Type: Spontaneous
  Country: CA (occurrence: CA)
  Receive Date: 20230325
  Receipt Date: 20230517
  Transmission Date: 20230721
  Serious: Yes (Hospitalization, Other)
  Sender: FDA-Public Use
  Company Number: CA-CELLTRION INC.-2023CA006213

PATIENT

DRUGS (1)
  1. INFLECTRA [Suspect]
     Active Substance: INFLIXIMAB-DYYB
     Indication: Colitis ulcerative
     Dosage: RECEIVED AT HOSPITAL
     Route: 042
     Dates: start: 20230221

REACTIONS (3)
  - Brain injury [Unknown]
  - General physical health deterioration [Not Recovered/Not Resolved]
  - Dementia [Not Recovered/Not Resolved]
